FAERS Safety Report 17523779 (Version 1)
Quarter: 2020Q1

REPORT INFORMATION
  Report Type: Spontaneous
  Country: US (occurrence: US)
  Receive Date: 20200228
  Receipt Date: 20200228
  Transmission Date: 20200409
  Serious: Yes (Other)
  Sender: FDA-Public Use
  Company Number: None

PATIENT

DRUGS (1)
  1. NIFEDIPINE. [Suspect]
     Active Substance: NIFEDIPINE
     Indication: HYPERTENSION
     Dosage: ?          QUANTITY:30 DF DOSAGE FORM;?
     Route: 048
     Dates: start: 2018, end: 201902

REACTIONS (5)
  - Joint swelling [None]
  - Peripheral swelling [None]
  - Burning sensation [None]
  - Hypoaesthesia [None]
  - Musculoskeletal pain [None]

NARRATIVE: CASE EVENT DATE: 2018
